FAERS Safety Report 17420460 (Version 7)
Quarter: 2023Q1

REPORT INFORMATION
  Report Type: Spontaneous
  Country: DK (occurrence: DK)
  Receive Date: 20200214
  Receipt Date: 20230323
  Transmission Date: 20230418
  Serious: Yes (Other)
  Sender: FDA-Public Use
  Company Number: None

PATIENT
  Age: 69 Year
  Sex: Female

DRUGS (23)
  1. MOMETASONE FUROATE [Suspect]
     Active Substance: MOMETASONE FUROATE
     Indication: Eczema
     Dosage: UNK
     Route: 061
  2. MOMETASONE FUROATE [Suspect]
     Active Substance: MOMETASONE FUROATE
     Indication: Skin test
  3. TRIAMCINOLONE ACETONIDE [Suspect]
     Active Substance: TRIAMCINOLONE ACETONIDE
     Indication: Skin test
     Dosage: STRENGTH: 0.1%
     Route: 061
  4. TRIAMCINOLONE ACETONIDE [Suspect]
     Active Substance: TRIAMCINOLONE ACETONIDE
     Dosage: STRENGTH: 1%
     Route: 061
  5. BETAMETHASONE VALERATE [Suspect]
     Active Substance: BETAMETHASONE VALERATE
     Indication: Skin test
     Dosage: STRENGTH: 0.12%
     Route: 061
  6. BETAMETHASONE VALERATE [Suspect]
     Active Substance: BETAMETHASONE VALERATE
     Dosage: STRENGTH: 1%
     Route: 061
  7. HYDROCORTISONE [Suspect]
     Active Substance: HYDROCORTISONE
     Indication: Haemorrhoids
     Dosage: STRENGTH: 0.1%
     Route: 061
  8. HYDROCORTISONE [Suspect]
     Active Substance: HYDROCORTISONE
     Indication: Skin test
     Dosage: STRENGTH: 1%
     Route: 061
  9. BUDESONIDE [Suspect]
     Active Substance: BUDESONIDE
     Indication: Skin test
     Dosage: STRENGTH: 0.1%
     Route: 061
  10. CLOBETASOL PROPIONATE [Suspect]
     Active Substance: CLOBETASOL PROPIONATE
     Indication: Skin test
     Dosage: STRENGTH: 1%
     Route: 061
  11. CLOBETASOL PROPIONATE [Suspect]
     Active Substance: CLOBETASOL PROPIONATE
     Dosage: STRENGTH 0.25%
     Route: 061
  12. TIXOCORTOL PIVALATE [Suspect]
     Active Substance: TIXOCORTOL PIVALATE
     Indication: Skin test
     Dosage: STRENGTH: 1%
     Route: 061
  13. AMCINONIDE [Suspect]
     Active Substance: AMCINONIDE
     Indication: Skin test
     Dosage: STRENGTH: 0.1%
     Route: 061
  14. DESOXIMETASONE [Suspect]
     Active Substance: DESOXIMETASONE
     Indication: Skin test
     Dosage: STRENGTH: 1%
     Route: 061
  15. DIBUCAINE HYDROCHLORIDE [Suspect]
     Active Substance: DIBUCAINE HYDROCHLORIDE
     Indication: Skin test
     Dosage: STRENGTH: 5%
     Route: 061
  16. DIBUCAINE [Suspect]
     Active Substance: DIBUCAINE
     Indication: Haemorrhoids
     Dosage: UNK
     Route: 065
  17. PHENYLEPHRINE HYDROCHLORIDE [Suspect]
     Active Substance: PHENYLEPHRINE HYDROCHLORIDE
     Indication: Product used for unknown indication
     Dosage: UNK
     Route: 065
  18. SYNALAR [Suspect]
     Active Substance: FLUOCINOLONE ACETONIDE
     Indication: Haemorrhoids
     Dosage: UNK
     Route: 065
  19. BENZOCAINE [Suspect]
     Active Substance: BENZOCAINE
     Indication: Skin test
     Dosage: (CAINE MIX)
     Route: 061
  20. DIBUCAINE [Suspect]
     Active Substance: DIBUCAINE
     Indication: Skin test
     Dosage: STRENGTH: 5% (CAINE MIX)
     Route: 061
  21. TETRACAINE [Suspect]
     Active Substance: TETRACAINE
     Indication: Skin test
     Dosage: (CAINE MIX)
     Route: 061
  22. DEXAMETHASONE SODIUM PHOSPHATE [Suspect]
     Active Substance: DEXAMETHASONE SODIUM PHOSPHATE
     Indication: Skin test
     Dosage: STRENGTH: 1%
     Route: 061
  23. ALCLOMETASONE DIPROPIONATE [Suspect]
     Active Substance: ALCLOMETASONE DIPROPIONATE
     Indication: Skin test
     Dosage: STRENGTH: 1%
     Route: 061

REACTIONS (3)
  - Dermatitis allergic [Not Recovered/Not Resolved]
  - Hypersensitivity [Not Recovered/Not Resolved]
  - Drug ineffective [Unknown]
